FAERS Safety Report 21450058 (Version 1)
Quarter: 2022Q4

REPORT INFORMATION
  Report Type: Report from Study
  Country: US (occurrence: US)
  Receive Date: 20221013
  Receipt Date: 20221013
  Transmission Date: 20230113
  Serious: No
  Sender: FDA-Public Use
  Company Number: US-ABBVIE-4141830

PATIENT
  Sex: Male

DRUGS (1)
  1. HUMIRA [Suspect]
     Active Substance: ADALIMUMAB
     Indication: Psoriatic arthropathy
     Route: 058
     Dates: start: 20220729

REACTIONS (3)
  - Post procedural complication [Recovering/Resolving]
  - Endodontic procedure [Unknown]
  - Lymphadenopathy [Recovering/Resolving]

NARRATIVE: CASE EVENT DATE: 20220101
